FAERS Safety Report 14961683 (Version 1)
Quarter: 2018Q2

REPORT INFORMATION
  Report Type: Report from Study
  Country: TW (occurrence: US)
  Receive Date: 20180601
  Receipt Date: 20180601
  Transmission Date: 20180711
  Serious: Yes (Hospitalization)
  Sender: FDA-Public Use
  Company Number: US-YUNG SHIN PHARMACEUTICAL IND.  CO., LTD.-2048828

PATIENT
  Age: 51 Year
  Sex: Male

DRUGS (2)
  1. CEPHALEXIN. [Suspect]
     Active Substance: CEPHALEXIN
  2. CEPHALEXIN (CEPHALEXIN) UNKNOWN [Suspect]
     Active Substance: CEPHALEXIN
     Indication: TENOPLASTY

REACTIONS (1)
  - Thrombotic thrombocytopenic purpura [Recovered/Resolved]
